FAERS Safety Report 9753699 (Version 1)
Quarter: 2013Q4

REPORT INFORMATION
  Report Type: Spontaneous
  Country: IT (occurrence: IT)
  Receive Date: 20131213
  Receipt Date: 20131213
  Transmission Date: 20140711
  Serious: Yes (Hospitalization)
  Sender: FDA-Public Use
  Company Number: PHHY2013IT143135

PATIENT
  Sex: Male

DRUGS (5)
  1. TERAZOSIN [Suspect]
     Route: 048
     Dates: start: 20131113, end: 20131113
  2. TRIATEC [Concomitant]
  3. METFORMIN [Concomitant]
  4. SIMVASTATIN [Concomitant]
  5. AMLODIPINE [Concomitant]

REACTIONS (2)
  - Cold sweat [Unknown]
  - Presyncope [Unknown]
